FAERS Safety Report 4804835-2 (Version None)
Quarter: 2005Q4

REPORT INFORMATION
  Report Type: 
  Country: None (occurrence: None)
  Receive Date: 20051020
  Receipt Date: 20051013
  Transmission Date: 20060501
  Serious: Yes (Other)
  Sender: FDA-Public Use
  Company Number: PHBS2005BE15057

PATIENT
  Age: 95 Year
  Sex: Male

DRUGS (12)
  1. DIOVAN [Suspect]
     Indication: HYPERTENSION
     Dosage: 80 MG, QD
     Route: 048
     Dates: start: 20000101
  2. AMLOR [Concomitant]
  3. ASPIRIN [Concomitant]
  4. LANITOP [Concomitant]
  5. FLUDEX [Concomitant]
  6. CALCIUM GLUCONATE [Concomitant]
     Dosage: 1 G, UNK
  7. GLURENORM [Concomitant]
  8. GLUCOPHAGE [Concomitant]
     Dosage: 850 MG, UNK
  9. ACTAPULGITE [Concomitant]
  10. FROBIOTHECAL [Concomitant]
  11. D-CURE [Concomitant]
  12. URGENIN [Concomitant]

REACTIONS (10)
  - ABDOMINAL PAIN UPPER [None]
  - ANOREXIA [None]
  - DIARRHOEA [None]
  - GAMMA-GLUTAMYLTRANSFERASE INCREASED [None]
  - HEPATIC CIRRHOSIS [None]
  - MELAENA [None]
  - NAUSEA [None]
  - OESOPHAGITIS [None]
  - PORTAL HYPERTENSION [None]
  - VARICES OESOPHAGEAL [None]
